FAERS Safety Report 5393544-X (Version None)
Quarter: 2007Q3

REPORT INFORMATION
  Report Type: 
  Country: None (occurrence: None)
  Receive Date: 20070719
  Receipt Date: 20070719
  Transmission Date: 20080115
  Serious: Yes (Other)
  Sender: FDA-Public Use
  Company Number: None

PATIENT
  Age: 16 Year
  Sex: Male
  Weight: 43.9989 kg

DRUGS (2)
  1. PAXIL [Suspect]
     Indication: ANXIETY
     Dosage: 10 MG PO DAILY
     Route: 048
  2. PAXIL [Suspect]
     Indication: DEPRESSION
     Dosage: 10 MG PO DAILY
     Route: 048

REACTIONS (1)
  - DRUG INEFFECTIVE [None]
